FAERS Safety Report 8373054 (Version 4)
Quarter: 2013Q2

REPORT INFORMATION
  Report Type: Report from Study
  Country: US (occurrence: US)
  Receive Date: 20120128
  Receipt Date: 20130419
  Transmission Date: 20140414
  Serious: Yes (Hospitalization, Other)
  Sender: FDA-Public Use
  Company Number: US-ABBOTT-11P-163-0841395-00

PATIENT
  Age: 58 Year
  Sex: Male
  Weight: 57.2 kg

DRUGS (7)
  1. HUMIRA [Suspect]
     Indication: SARCOIDOSIS
     Route: 058
  2. HUMIRA [Suspect]
     Dates: start: 20120927
  3. FOLIC ACID [Concomitant]
     Indication: VITAMIN SUPPLEMENTATION
     Dosage: 1 MG DAILY
  4. MELOXICAM [Concomitant]
     Indication: SARCOIDOSIS
  5. METHOTREXATE [Concomitant]
     Indication: SARCOIDOSIS
     Dosage: 4 TABLETS: 1 IN 1 WEEKS
  6. ZOCOR [Concomitant]
     Indication: BLOOD CHOLESTEROL INCREASED
     Dosage: 10 MG DAILY
  7. ZOCOR [Concomitant]
     Indication: PROPHYLAXIS

REACTIONS (24)
  - Blood calcium abnormal [Unknown]
  - Blindness unilateral [Unknown]
  - Pain in extremity [Not Recovered/Not Resolved]
  - Fatigue [Not Recovered/Not Resolved]
  - Arthralgia [Not Recovered/Not Resolved]
  - Malaise [Not Recovered/Not Resolved]
  - Fatigue [Not Recovered/Not Resolved]
  - Pain in extremity [Not Recovered/Not Resolved]
  - Pain in extremity [Not Recovered/Not Resolved]
  - Pain [Not Recovered/Not Resolved]
  - Weight increased [Not Recovered/Not Resolved]
  - Somnolence [Not Recovered/Not Resolved]
  - Sarcoidosis [Not Recovered/Not Resolved]
  - Red blood cell count decreased [Unknown]
  - Nephrolithiasis [Not Recovered/Not Resolved]
  - Asthenia [Not Recovered/Not Resolved]
  - Rash generalised [Unknown]
  - Peripheral coldness [Unknown]
  - Weight decreased [Unknown]
  - Thirst [Unknown]
  - Pollakiuria [Recovering/Resolving]
  - Sarcoidosis [Unknown]
  - Fatigue [Not Recovered/Not Resolved]
  - Off label use [Unknown]
